FAERS Safety Report 5415300-6 (Version None)
Quarter: 2007Q3

REPORT INFORMATION
  Report Type: 
  Country: None (occurrence: None)
  Receive Date: 20070815
  Receipt Date: 20070808
  Transmission Date: 20080115
  Serious: Yes (Hospitalization)
  Sender: FDA-Public Use
  Company Number: FR-ASTRAZENECA-2007CG01161

PATIENT
  Age: 28720 Day
  Sex: Female

DRUGS (10)
  1. NEXIUM [Suspect]
     Indication: GASTROOESOPHAGEAL REFLUX DISEASE
     Route: 048
     Dates: start: 20070401, end: 20070621
  2. CHLORAMINOPHENE [Suspect]
     Indication: CHRONIC LYMPHOCYTIC LEUKAEMIA
     Route: 048
     Dates: start: 20040101, end: 20070525
  3. OMEPRAZOLE [Concomitant]
     Route: 048
  4. LEVOTHYROXINE SODIUM [Concomitant]
     Indication: HYPOTHYROIDISM
     Route: 048
  5. STABLON [Concomitant]
     Indication: DEPRESSION
     Route: 048
  6. MICARDIS [Concomitant]
     Indication: HYPERTENSION
     Route: 048
  7. NORDAZ [Concomitant]
     Route: 048
  8. TIMOPTIC [Concomitant]
  9. DIPROSONE [Concomitant]
     Route: 061
     Dates: start: 20070610, end: 20070617
  10. ERY-TAB [Concomitant]
     Route: 048
     Dates: start: 20070610, end: 20070617

REACTIONS (2)
  - RECTAL HAEMORRHAGE [None]
  - THROMBOCYTOPENIA [None]
